FAERS Safety Report 5820319-7 (Version None)
Quarter: 2008Q3

REPORT INFORMATION
  Report Type: 
  Country: None (occurrence: None)
  Receive Date: 20080724
  Receipt Date: 20070606
  Transmission Date: 20090109
  Serious: No
  Sender: FDA-Public Use
  Company Number: A0654413A

PATIENT
  Age: 75 Year
  Sex: Female

DRUGS (8)
  1. AVANDIA [Suspect]
     Dosage: 2MG TWICE PER DAY
     Route: 048
  2. GLYBURIDE [Concomitant]
  3. NIFEDIPINE [Concomitant]
  4. ACTOS [Concomitant]
  5. TRICOR [Concomitant]
  6. ASPIRIN [Concomitant]
  7. PYRIDOXINE HCL [Concomitant]
  8. OMEPRAZOLE [Concomitant]

REACTIONS (3)
  - ABDOMINAL DISTENSION [None]
  - IMPAIRED GASTRIC EMPTYING [None]
  - INCREASED APPETITE [None]
